FAERS Safety Report 15806116 (Version 2)
Quarter: 2019Q1

REPORT INFORMATION
  Report Type: Other
  Country: GB (occurrence: GB)
  Receive Date: 20190110
  Receipt Date: 20190220
  Transmission Date: 20190417
  Serious: Yes (Other)
  Sender: FDA-Public Use
  Company Number: GB-STRIDES ARCOLAB LIMITED-2019SP000317

PATIENT
  Age: 88 Year
  Sex: Female

DRUGS (4)
  1. IBUPROFEN. [Suspect]
     Active Substance: IBUPROFEN
     Indication: MUSCLE STRAIN
     Dosage: 1.6 G DAILY
     Route: 048
     Dates: start: 20180727, end: 20180804
  2. ASPIRIN                            /00002701/ [Concomitant]
     Active Substance: ASPIRIN
     Indication: PRODUCT USED FOR UNKNOWN INDICATION
     Dosage: 1 DF, (ONE LOW DOSE ASPIRIN DAILY)
     Route: 048
  3. IBUPROFEN. [Suspect]
     Active Substance: IBUPROFEN
     Indication: PAIN
     Dosage: UNK
     Route: 048
     Dates: start: 20180802, end: 20180804
  4. IBUPROFEN. [Suspect]
     Active Substance: IBUPROFEN
     Indication: BACK PAIN
     Dosage: THREE LIBERAL APPLICATIONS
     Route: 061
     Dates: start: 20180802, end: 20180803

REACTIONS (19)
  - Decreased appetite [Recovered/Resolved]
  - Constipation [Recovered/Resolved]
  - Abdominal pain [Recovered/Resolved]
  - Urticaria [Recovered/Resolved]
  - Rash [Recovered/Resolved]
  - Rash vesicular [Recovered/Resolved]
  - Depression [Recovered/Resolved]
  - Post herpetic neuralgia [Not Recovered/Not Resolved]
  - Muscle injury [Recovered/Resolved]
  - Herpes zoster [Recovered/Resolved]
  - Vertigo [Not Recovered/Not Resolved]
  - Cough [Recovered/Resolved]
  - Pain [Not Recovered/Not Resolved]
  - Sleep disorder [Recovered/Resolved]
  - Vomiting [Recovered/Resolved]
  - Suicidal behaviour [Recovered/Resolved]
  - Syncope [Recovered/Resolved]
  - Confusional state [Recovered/Resolved]
  - Dyspnoea [Recovered/Resolved]

NARRATIVE: CASE EVENT DATE: 20180804
